FAERS Safety Report 7756587-4 (Version None)
Quarter: 2011Q3

REPORT INFORMATION
  Report Type: 
  Country: None (occurrence: None)
  Receive Date: 20110916
  Receipt Date: 20110906
  Transmission Date: 20111222
  Serious: Yes (Hospitalization)
  Sender: FDA-Public Use
  Company Number: PHHY2011US79906

PATIENT
  Age: 43 Year
  Sex: Male

DRUGS (2)
  1. RISPERIDONE [Interacting]
     Dosage: 37.5 MG, UNK
  2. TERBINAFINE HCL [Suspect]
     Indication: ONYCHOMYCOSIS

REACTIONS (5)
  - PERSECUTORY DELUSION [None]
  - PSYCHIATRIC DECOMPENSATION [None]
  - DRUG INTERACTION [None]
  - EXTRAPYRAMIDAL DISORDER [None]
  - HALLUCINATION, AUDITORY [None]
